FAERS Safety Report 6527500-2 (Version None)
Quarter: 2010Q1

REPORT INFORMATION
  Report Type: 
  Country: None (occurrence: None)
  Receive Date: 20100105
  Receipt Date: 20100104
  Transmission Date: 20100710
  Serious: Yes (Hospitalization)
  Sender: FDA-Public Use
  Company Number: US-ROXANE LABORATORIES, INC.-2010-RO-00001RO

PATIENT
  Sex: Female

DRUGS (3)
  1. PREDNISONE [Suspect]
     Indication: RENAL TRANSPLANT
     Dates: start: 20080129
  2. CYCLOSPORINE [Suspect]
     Indication: RENAL TRANSPLANT
     Dosage: 225 MG
     Route: 048
     Dates: start: 20061207
  3. CELLCEPT [Suspect]
     Indication: RENAL TRANSPLANT
     Dates: start: 20070803

REACTIONS (1)
  - INFLUENZA [None]
